FAERS Safety Report 4837101-X (Version None)
Quarter: 2005Q4

REPORT INFORMATION
  Report Type: 
  Country: None (occurrence: None)
  Receive Date: 20051122
  Receipt Date: 20051109
  Transmission Date: 20060501
  Serious: Yes (Other)
  Sender: FDA-Public Use
  Company Number: 2005153478

PATIENT
  Age: 53 Year
  Sex: Female

DRUGS (8)
  1. CELEBREX [Suspect]
     Indication: INTERVERTEBRAL DISC PROTRUSION
     Dosage: 400 MG (200 MG, 2 IN 1 D)
  2. PREMARIN [Suspect]
     Indication: ILL-DEFINED DISORDER
  3. ANASTROZOLE (ANASTROZOLE) [Concomitant]
     Indication: ILL-DEFINED DISORDER
     Dates: start: 20050403
  4. ALL OTHER THERAPEUTIC PRODUCT (ALL OTHER THERAPEUTIC PRODUCTS) [Suspect]
     Indication: BREAST CANCER
     Dates: start: 20040917
  5. GINSENG W/VITAMINS (EXTRACTUM GINSENG, VITAMINS NOS) [Suspect]
     Indication: ILL-DEFINED DISORDER
     Dates: start: 20050401, end: 20050601
  6. PROGESTERONE [Concomitant]
  7. NEFAZODONE HCL [Concomitant]
  8. ATIVAN [Concomitant]

REACTIONS (9)
  - ARTHRALGIA [None]
  - ARTHRITIS [None]
  - BREAST CANCER FEMALE [None]
  - CONDITION AGGRAVATED [None]
  - EXOSTOSIS [None]
  - NASOPHARYNGITIS [None]
  - VENTRICULAR EXTRASYSTOLES [None]
  - WEIGHT DECREASED [None]
  - WEIGHT INCREASED [None]
